FAERS Safety Report 20903352 (Version 2)
Quarter: 2022Q4

REPORT INFORMATION
  Report Type: Spontaneous
  Country: ES (occurrence: ES)
  Receive Date: 20220601
  Receipt Date: 20221011
  Transmission Date: 20230113
  Serious: Yes (Life-Threatening, Hospitalization, Other)
  Sender: FDA-Public Use
  Company Number: ES-AEMPS-1179316

PATIENT
  Age: 72 Year
  Sex: Female

DRUGS (5)
  1. ACETAMINOPHEN [Suspect]
     Active Substance: ACETAMINOPHEN
     Indication: Chemotherapy side effect prophylaxis
     Dosage: UNK
     Route: 048
     Dates: start: 20220425
  2. OBINUTUZUMAB [Suspect]
     Active Substance: OBINUTUZUMAB
     Indication: B-cell small lymphocytic lymphoma stage I
     Dosage: 100 MILLIGRAM
     Route: 041
     Dates: start: 20220425, end: 20220425
  3. ALLOPURINOL [Concomitant]
     Active Substance: ALLOPURINOL
     Indication: Product used for unknown indication
     Dosage: 300 MILLIGRAM, ONCE A DAY
     Route: 065
     Dates: start: 20220424
  4. DEXCHLORPHENIRAMINE [Concomitant]
     Active Substance: DEXCHLORPHENIRAMINE
     Indication: Chemotherapy side effect prophylaxis
     Dosage: UNK
     Route: 051
     Dates: start: 20220425
  5. METHYLPREDNISOLONE [Concomitant]
     Active Substance: METHYLPREDNISOLONE
     Indication: Chemotherapy side effect prophylaxis
     Dosage: UNK
     Route: 051
     Dates: start: 20220425

REACTIONS (5)
  - Hepatitis [Recovered/Resolved]
  - Hypertransaminasaemia [Recovering/Resolving]
  - Hypotension [Recovered/Resolved]
  - Pyrexia [Recovered/Resolved]
  - Chills [Recovered/Resolved]

NARRATIVE: CASE EVENT DATE: 20220425
